FAERS Safety Report 17014156 (Version 3)
Quarter: 2019Q4

REPORT INFORMATION
  Report Type: Spontaneous
  Country: AR (occurrence: AR)
  Receive Date: 20191111
  Receipt Date: 20191205
  Transmission Date: 20200122
  Serious: Yes (Hospitalization, Other)
  Sender: FDA-Public Use
  Company Number: AR-AMGEN-ARGSP2019179491

PATIENT
  Age: 62 Year
  Sex: Female

DRUGS (8)
  1. ENBREL [Suspect]
     Active Substance: ETANERCEPT
     Indication: RHEUMATOID ARTHRITIS
     Dosage: 50 MILLIGRAM, EVERY 15 DAYS
     Route: 065
     Dates: start: 20071010, end: 201906
  2. CLONAZEPAM. [Concomitant]
     Active Substance: CLONAZEPAM
     Dosage: UNK, QD
  3. ALPLAX [Concomitant]
     Active Substance: ALPRAZOLAM
     Dosage: 0.5 MILLIGRAM, QD
  4. ENBREL [Suspect]
     Active Substance: ETANERCEPT
     Dosage: 50 MILLIGRAM, CYCLIC (EVERY 10 DAYS)
     Route: 065
     Dates: start: 20191101
  5. ATENOLOL. [Concomitant]
     Active Substance: ATENOLOL
     Dosage: 0.5 MILLIGRAM, 3 TIMES/WK
  6. ZENTIUS [Concomitant]
     Active Substance: CITALOPRAM HYDROBROMIDE
     Dosage: UNK UNK, QD
  7. VIMOVO [Concomitant]
     Active Substance: ESOMEPRAZOLE MAGNESIUM\NAPROXEN
     Dosage: UNK, QD
  8. CLONAGIN [Concomitant]
     Dosage: UNK, QD

REACTIONS (3)
  - Limb injury [Unknown]
  - Off label use [Unknown]
  - Osteomyelitis [Recovered/Resolved]

NARRATIVE: CASE EVENT DATE: 20071010
